FAERS Safety Report 7298593-2 (Version None)
Quarter: 2011Q1

REPORT INFORMATION
  Report Type: 
  Country: None (occurrence: None)
  Receive Date: 20110217
  Receipt Date: 20110210
  Transmission Date: 20110831
  Serious: Yes (Hospitalization)
  Sender: FDA-Public Use
  Company Number: US-US-EMD SERONO, INC.-230703J07USA

PATIENT
  Sex: Male
  Weight: 104 kg

DRUGS (3)
  1. REBIF [Suspect]
     Indication: MULTIPLE SCLEROSIS
     Route: 058
     Dates: start: 20060526, end: 20080101
  2. REBIF [Suspect]
     Route: 058
     Dates: start: 20080501, end: 20110201
  3. REBIF [Suspect]
     Route: 058
     Dates: start: 20080501, end: 20080501

REACTIONS (6)
  - CORONARY ARTERY OCCLUSION [None]
  - HYPERTENSION [None]
  - HEART RATE INCREASED [None]
  - DIZZINESS [None]
  - HEART RATE ABNORMAL [None]
  - BLOOD PRESSURE ABNORMAL [None]
